FAERS Safety Report 4722564-0 (Version None)
Quarter: 2005Q3

REPORT INFORMATION
  Report Type: 
  Country: None (occurrence: None)
  Receive Date: 20050722
  Receipt Date: 20050715
  Transmission Date: 20060218
  Serious: Yes (Death, Hospitalization, Other)
  Sender: FDA-Public Use
  Company Number: PHBS2005MA10270

PATIENT
  Age: 25 Year
  Sex: Male

DRUGS (1)
  1. CYCLOSPORINE [Suspect]
     Indication: BEHCET'S SYNDROME
     Dosage: 6 MG/KG/DAY
     Dates: start: 19840901

REACTIONS (17)
  - BLOOD CREATININE INCREASED [None]
  - BLOOD LACTATE DEHYDROGENASE INCREASED [None]
  - BLOOD UREA INCREASED [None]
  - CARDIO-RESPIRATORY ARREST [None]
  - GRAND MAL CONVULSION [None]
  - HAEMATURIA [None]
  - HAEMODIALYSIS [None]
  - HAPTOGLOBIN DECREASED [None]
  - HYPERTENSION [None]
  - INTRAVASCULAR HAEMOLYSIS [None]
  - NEPHROPATHY TOXIC [None]
  - POSTICTAL STATE [None]
  - PROTEINURIA [None]
  - RENAL FAILURE [None]
  - RETINITIS [None]
  - THROMBOTIC MICROANGIOPATHY [None]
  - UVEITIS [None]
